FAERS Safety Report 9162149 (Version 2)
Quarter: 2013Q2

REPORT INFORMATION
  Report Type: Spontaneous
  Country: FR (occurrence: None)
  Receive Date: 20130222
  Receipt Date: 20130405
  Transmission Date: 20140414
  Serious: Yes (Life-Threatening)
  Sender: FDA-Public Use
  Company Number: AUR-APL-2013-01475

PATIENT
  Age: 76 Year
  Sex: Male

DRUGS (7)
  1. SIMVASTATIN [Suspect]
     Indication: DYSLIPIDAEMIA
     Route: 048
  2. CORDARONE (AMIODARONE HYDROCHLORIDE)/ORAL/TABLET/200 MILLIGRAMS(S) [Suspect]
     Indication: ARRHYTHMIA
     Route: 048
     Dates: start: 20121018, end: 20121114
  3. PRADAXA (DABIGATRAN ETEXILATE) [Suspect]
     Indication: ATRIAL TACHYCARDIA
     Route: 048
     Dates: start: 20121018, end: 201212
  4. BISOPROLOL (BISOPROLOL) [Suspect]
     Indication: PRODUCT USED FOR UNKNOWN INDICATION
     Route: 048
     Dates: start: 201210, end: 201212
  5. NIDREL (NITRENDIPINE) [Concomitant]
  6. FUROSEMIDE (FUROSEMIDE) [Suspect]
     Indication: PRODUCT USED FOR UNKNOWN INDICATION
     Route: 048
     Dates: start: 201210, end: 201212
  7. KARDEGIC [Suspect]
     Indication: PRODUCT USED FOR UNKNOWN INDICATION
     Route: 048
     Dates: start: 201210, end: 201212

REACTIONS (14)
  - Acute pulmonary oedema [None]
  - Respiratory distress [None]
  - Hypercapnia [None]
  - Pulmonary fibrosis [None]
  - Lung infection [None]
  - Cardio-respiratory arrest [None]
  - Hyperthermia [None]
  - Confusional state [None]
  - Disorientation [None]
  - Erythrophagocytosis [None]
  - Pulmonary haemorrhage [None]
  - Hypoxia [None]
  - Cough [None]
  - Respiratory acidosis [None]
